FAERS Safety Report 4407202-9 (Version None)
Quarter: 2004Q3

REPORT INFORMATION
  Report Type: 
  Country: None (occurrence: None)
  Receive Date: 20040723
  Receipt Date: 20040723
  Transmission Date: 20050211
  Serious: Yes (Other)
  Sender: FDA-Public Use
  Company Number: None

PATIENT
  Age: 79 Year
  Sex: Male
  Weight: 74.4 kg

DRUGS (7)
  1. TERAZOSIN HCL [Suspect]
  2. SIMVASTATIN [Concomitant]
  3. FEXOFENADINE HCL [Concomitant]
  4. FLUTICAS/SALMETEROL [Concomitant]
  5. GABAPENTIN [Concomitant]
  6. RABEPRAZOLE SODIUM [Concomitant]
  7. ALBUTEROL/IPRATROP [Concomitant]

REACTIONS (1)
  - DIZZINESS [None]
